FAERS Safety Report 17792975 (Version 4)
Quarter: 2020Q2

REPORT INFORMATION
  Report Type: Spontaneous
  Country: GB (occurrence: GB)
  Receive Date: 20200515
  Receipt Date: 20200604
  Transmission Date: 20200714
  Serious: No
  Sender: FDA-Public Use
  Company Number: NVSC2020GB052829

PATIENT
  Age: 46 Year
  Sex: Female

DRUGS (6)
  1. RIGEVIDON [Concomitant]
     Indication: CONTRACEPTION
     Dosage: UNK
     Route: 048
  2. LEFLUNOMIDE. [Suspect]
     Active Substance: LEFLUNOMIDE
     Indication: RHEUMATOID ARTHRITIS
     Dosage: STARTED 4 YEARS PRIOR
     Route: 065
  3. PARACETAMOL [Concomitant]
     Active Substance: ACETAMINOPHEN
     Indication: PRODUCT USED FOR UNKNOWN INDICATION
     Dosage: UNK
     Route: 065
  4. TOLTERODINE [Concomitant]
     Active Substance: TOLTERODINE
     Indication: PRODUCT USED FOR UNKNOWN INDICATION
     Dosage: UNK
     Route: 065
  5. METHOTREXATE. [Suspect]
     Active Substance: METHOTREXATE
     Indication: RHEUMATOID ARTHRITIS
     Dosage: UNK
     Route: 048
  6. COCODAMOL [Concomitant]
     Active Substance: ACETAMINOPHEN\CODEINE PHOSPHATE
     Indication: PRODUCT USED FOR UNKNOWN INDICATION
     Dosage: UNK
     Route: 065

REACTIONS (14)
  - Blood lactate dehydrogenase increased [Recovered/Resolved]
  - Alopecia [Recovered/Resolved]
  - C-reactive protein increased [Recovered/Resolved]
  - Drug ineffective [Unknown]
  - Fatigue [Recovered/Resolved]
  - Blood creatine phosphokinase increased [Recovered/Resolved]
  - Dyspnoea [Recovered/Resolved]
  - Red blood cell sedimentation rate increased [Recovered/Resolved]
  - Dry mouth [Recovered/Resolved]
  - Myositis [Recovered/Resolved]
  - Muscular weakness [Recovering/Resolving]
  - Oedema [Recovered/Resolved]
  - Alanine aminotransferase increased [Recovered/Resolved]
  - Idiosyncratic drug reaction [Unknown]
